FAERS Safety Report 14461298 (Version 1)
Quarter: 2018Q1

REPORT INFORMATION
  Report Type: Spontaneous
  Country: DK (occurrence: DK)
  Receive Date: 20180130
  Receipt Date: 20180130
  Transmission Date: 20180509
  Serious: Yes (Hospitalization)
  Sender: FDA-Public Use
  Company Number: DK-TEVA-2018-DK-849359

PATIENT
  Age: 89 Year
  Sex: Female

DRUGS (9)
  1. CONTALGIN [Concomitant]
     Active Substance: MORPHINE SULFATE
     Indication: PAIN
     Dosage: STRENGHT: 5 MG. DOSAGE: 2 TABLETS MORNING AND 1 TABLET EVENING
     Route: 048
     Dates: start: 20150605
  2. BISACODYL. [Concomitant]
     Active Substance: BISACODYL
     Indication: CONSTIPATION
     Dosage: STRENGHT: 5 MG
     Route: 048
     Dates: start: 20151223
  3. SERETIDE [Concomitant]
     Active Substance: FLUTICASONE PROPIONATE\SALMETEROL XINAFOATE
     Indication: LUNG DISORDER
     Dosage: STRENGHT: 25 + 250MCG/DOSAGE
     Route: 055
     Dates: start: 20151223
  4. UNIKALK MED D-VITAMIN [Concomitant]
     Indication: HYPOKALAEMIA
     Dosage: STRENGHT: 400 MG + 19MCG
     Route: 048
     Dates: start: 20171023
  5. PARACETAMOL [Concomitant]
     Active Substance: ACETAMINOPHEN
     Indication: PAIN
     Dosage: STRENGHT: 500 MG
     Route: 048
     Dates: start: 20151223
  6. SALBUTAMOL [Concomitant]
     Active Substance: ALBUTEROL
     Indication: BRONCHOSPASM
     Dosage: STRENGHT: 0.2 MG. DOSAGE: 1 PUFF AS NEEDED
     Route: 055
     Dates: start: 20151223
  7. GANGIDEN [Concomitant]
     Indication: CONSTIPATION
     Dosage: DOSAGE: 1PACK AS NEEDED, NO MORE THAN THREE TIMES DAILY
     Route: 048
     Dates: start: 20171110
  8. ALENDRONAT [Suspect]
     Active Substance: ALENDRONATE SODIUM
     Indication: OSTEOPOROSIS
     Dosage: STRENGHT: 70 MG
     Route: 048
     Dates: start: 20150612, end: 20171213
  9. MORFIN [Concomitant]
     Active Substance: MORPHINE SULFATE
     Indication: PAIN
     Dosage: STRENGTH: 10 MG. DOSAGE: 1/2 TABLET IF NEEDED NO MORE THAN TWICE A DAY
     Route: 048
     Dates: start: 20171110

REACTIONS (4)
  - Malnutrition [Not Recovered/Not Resolved]
  - Weight decreased [Not Recovered/Not Resolved]
  - Nausea [Not Recovered/Not Resolved]
  - Dyspepsia [Not Recovered/Not Resolved]
